FAERS Safety Report 8288603-8 (Version None)
Quarter: 2012Q2

REPORT INFORMATION
  Report Type: 
  Country: None (occurrence: None)
  Receive Date: 20120416
  Receipt Date: 20120413
  Transmission Date: 20120825
  Serious: Yes (Death, Hospitalization)
  Sender: FDA-Public Use
  Company Number: RO-ABBOTT-12P-135-0925751-00

PATIENT
  Sex: Female
  Weight: 78 kg

DRUGS (7)
  1. ZEMPLAR [Suspect]
     Indication: HYPERPARATHYROIDISM SECONDARY
     Route: 048
     Dates: start: 20110511, end: 20120229
  2. METHYLPREDNISOLONE [Concomitant]
     Indication: ANTINEUTROPHIL CYTOPLASMIC ANTIBODY POSITIVE
  3. L TYROXIN [Concomitant]
     Indication: HYPOTHYROIDISM
     Route: 048
     Dates: start: 20090101
  4. NEBIVOLOL [Concomitant]
     Indication: HYPERTENSION
     Route: 048
     Dates: start: 20100101
  5. METHYLPREDNISOLONE [Concomitant]
     Indication: VASCULITIS
     Route: 048
     Dates: start: 20080601
  6. ZEMPLAR [Suspect]
     Dates: start: 20120229, end: 20120307
  7. INDAPAMID [Concomitant]
     Indication: HYPERTENSION
     Route: 048
     Dates: start: 20090601

REACTIONS (3)
  - CARDIAC ARREST [None]
  - CARDIOGENIC SHOCK [None]
  - ACUTE MYOCARDIAL INFARCTION [None]
